FAERS Safety Report 9749482 (Version 2)
Quarter: 2014Q1

REPORT INFORMATION
  Report Type: Spontaneous
  Country: US (occurrence: US)
  Receive Date: 20131212
  Receipt Date: 20140213
  Transmission Date: 20141002
  Serious: No
  Sender: FDA-Public Use
  Company Number: US-GILEAD-2013-0089507

PATIENT
  Age: 61 Year
  Sex: Female

DRUGS (2)
  1. LETAIRIS [Suspect]
     Indication: PULMONARY ARTERIAL HYPERTENSION
     Dosage: 10 MG, QD
     Route: 048
     Dates: start: 20131011
  2. ADCIRCA [Concomitant]
     Indication: PULMONARY ARTERIAL HYPERTENSION

REACTIONS (1)
  - Catheterisation cardiac [Recovered/Resolved]
